FAERS Safety Report 7472012-5 (Version None)
Quarter: 2011Q2

REPORT INFORMATION
  Report Type: 
  Country: None (occurrence: None)
  Receive Date: 20110511
  Receipt Date: 20100920
  Transmission Date: 20111010
  Serious: No
  Sender: FDA-Public Use
  Company Number: A0883543A

PATIENT
  Sex: Female

DRUGS (2)
  1. TYKERB [Suspect]
     Dosage: 1250MGD PER DAY
     Route: 048
     Dates: start: 20100914
  2. IMODIUM [Suspect]

REACTIONS (5)
  - BACK PAIN [None]
  - INSOMNIA [None]
  - DRUG INEFFECTIVE [None]
  - DIARRHOEA [None]
  - WEIGHT DECREASED [None]
